FAERS Safety Report 14533028 (Version 1)
Quarter: 2018Q1

REPORT INFORMATION
  Report Type: Spontaneous
  Country: US (occurrence: US)
  Receive Date: 20180215
  Receipt Date: 20180215
  Transmission Date: 20180509
  Serious: No
  Sender: FDA-Public Use
  Company Number: US-CELGENEUS-USA-20180204010

PATIENT
  Age: 45 Year
  Sex: Female

DRUGS (1)
  1. OTEZLA [Suspect]
     Active Substance: APREMILAST
     Indication: PSORIASIS
     Dosage: 60 MILLIGRAM
     Route: 048
     Dates: start: 20170713, end: 20180131

REACTIONS (7)
  - Immune system disorder [Recovered/Resolved]
  - Irritability [Recovered/Resolved]
  - Depression [Recovered/Resolved]
  - Nausea [Recovering/Resolving]
  - Headache [Recovered/Resolved]
  - Nasopharyngitis [Recovered/Resolved]
  - Nasopharyngitis [Unknown]

NARRATIVE: CASE EVENT DATE: 20171115
